FAERS Safety Report 7599871-X (Version None)
Quarter: 2011Q3

REPORT INFORMATION
  Report Type: 
  Country: None (occurrence: None)
  Receive Date: 20110711
  Receipt Date: 20110705
  Transmission Date: 20111222
  Serious: No
  Sender: FDA-Public Use
  Company Number: US-PFIZER INC-2011070136

PATIENT
  Sex: Male
  Weight: 90.7 kg

DRUGS (7)
  1. IBUPROFEN [Suspect]
     Dosage: UNK
  2. FISH OIL [Concomitant]
     Dosage: UNK
  3. CELEBREX [Suspect]
     Indication: BACK PAIN
     Dosage: 200 MG, 2X/DAY
     Route: 048
  4. NAPROXEN [Suspect]
     Dosage: UNK
  5. CELEBREX [Suspect]
     Indication: PAIN IN EXTREMITY
  6. ACETAMINOPHEN [Concomitant]
     Dosage: UNK
  7. ASPIRIN [Suspect]
     Dosage: UNK

REACTIONS (7)
  - NAUSEA [None]
  - ERUCTATION [None]
  - ABDOMINAL DISCOMFORT [None]
  - TINNITUS [None]
  - VOMITING [None]
  - DRUG DOSE OMISSION [None]
  - DIARRHOEA [None]
